FAERS Safety Report 7178893-7 (Version None)
Quarter: 2010Q4

REPORT INFORMATION
  Report Type: 
  Country: None (occurrence: None)
  Receive Date: 20101209
  Receipt Date: 20101202
  Transmission Date: 20110411
  Serious: Yes (Life-Threatening)
  Sender: FDA-Public Use
  Company Number: PI-05090-001

PATIENT
  Sex: Female

DRUGS (5)
  1. CHLORAPREP [Suspect]
     Indication: PREOPERATIVE CARE
     Dosage: ONCE, TOPICAL
     Route: 061
     Dates: start: 20090601
  2. CEFUROXIME [Concomitant]
  3. METRONIDAZOLE [Concomitant]
  4. ATRACURIUM [Concomitant]
  5. GELOFUSINE [Concomitant]

REACTIONS (1)
  - ANAPHYLACTIC REACTION [None]
